FAERS Safety Report 10101343 (Version 3)
Quarter: 2014Q2

REPORT INFORMATION
  Report Type: Spontaneous
  Country: US (occurrence: None)
  Receive Date: 20140422
  Receipt Date: 20140515
  Transmission Date: 20141212
  Serious: Yes (Other)
  Sender: FDA-Public Use
  Company Number: 2014-US-004325

PATIENT
  Age: 34 Year
  Sex: Female

DRUGS (2)
  1. XYREM (SODIUM OXYBATE) ORAL SOLUTION, 500MG/ML [Suspect]
     Indication: NARCOLEPSY
     Dosage: 2.5 G, BID, ORAL
     Route: 048
     Dates: start: 201002, end: 2010
  2. WELLBUTRIN (BUPROPION HYDROCHLORIDE) [Suspect]
     Indication: PRODUCT USED FOR UNKNOWN INDICATION

REACTIONS (6)
  - Generalised tonic-clonic seizure [None]
  - Erythema [None]
  - Insomnia [None]
  - Rebound effect [None]
  - Eye irritation [None]
  - Fatigue [None]
